FAERS Safety Report 20378880 (Version 5)
Quarter: 2022Q1

REPORT INFORMATION
  Report Type: Spontaneous
  Country: US (occurrence: US)
  Receive Date: 20220126
  Receipt Date: 20220331
  Transmission Date: 20220423
  Serious: Yes (Hospitalization)
  Sender: FDA-Public Use
  Company Number: US-PFIZER INC-202200051107

PATIENT
  Age: 74 Year
  Sex: Female
  Weight: 57.15 kg

DRUGS (23)
  1. XELJANZ [Suspect]
     Active Substance: TOFACITINIB CITRATE
     Indication: Rheumatoid arthritis
     Dosage: 5 MG, 2X/DAY
  2. ELIQUIS [Suspect]
     Active Substance: APIXABAN
     Dosage: UNK
  3. CLOPIDOGREL [Suspect]
     Active Substance: CLOPIDOGREL BISULFATE
     Dosage: 75 MG, 1X/DAY
  4. CLARITHROMYCIN [Suspect]
     Active Substance: CLARITHROMYCIN
     Dosage: UNK
  5. SYNTHROID [Concomitant]
     Active Substance: LEVOTHYROXINE SODIUM
     Indication: Thyroid cancer
     Dosage: 125 UG, 1X/DAY (125 MCG, EVERY MORNING)
  6. MAGNESIUM [Concomitant]
     Active Substance: MAGNESIUM
     Dosage: 400 MG, 1X/DAY (400 MG EVERY MORNING)
  7. SERTRALINE [Concomitant]
     Active Substance: SERTRALINE HYDROCHLORIDE
     Dosage: 50 MG, 1X/DAY (50 MG IN THE MORNING)
  8. AMLODIPINE [Concomitant]
     Active Substance: AMLODIPINE BESYLATE
     Dosage: 2.5 MG, 1X/DAY (2.5 MG IN THE MORNING)
  9. ESTRADIOL [Concomitant]
     Active Substance: ESTRADIOL
     Dosage: 2 MG, 1X/DAY (2 MG IN THE MORNING)
  10. TOPIRAMATE [Concomitant]
     Active Substance: TOPIRAMATE
     Dosage: 50 MG, 2X/DAY (50 MG, ONE IN THE MORNING AND ONE AT NIGHT)
  11. MONTELUKAST [Concomitant]
     Active Substance: MONTELUKAST SODIUM
     Dosage: 10 MG, 1X/DAY (10 MG IN THE MORNING)
  12. CALCIUM [Concomitant]
     Active Substance: CALCIUM
     Dosage: 600 MG
  13. VITAMIN D3 [Concomitant]
     Active Substance: CHOLECALCIFEROL
     Dosage: 125 UG
  14. CETIRIZINE HYDROCHLORIDE [Concomitant]
     Active Substance: CETIRIZINE HYDROCHLORIDE
     Dosage: 10 MG, 1X/DAY (10 MG AT NIGHT)
  15. CYCLOBENZAPRINE [Concomitant]
     Active Substance: CYCLOBENZAPRINE
     Dosage: 10 MG
  16. ATORVASTATIN [Concomitant]
     Active Substance: ATORVASTATIN
     Dosage: 40 MG, 1X/DAY (40 MG AT NIGHT)
  17. FENOFIBRATE [Concomitant]
     Active Substance: FENOFIBRATE
     Dosage: 160 MG, 1X/DAY (160 MG, ONCE A DAY AT NIGHT)
  18. ASPIRIN [Concomitant]
     Active Substance: ASPIRIN
     Indication: Cardiac disorder
     Dosage: UNK
  19. PANTOPRAZOLE [Concomitant]
     Active Substance: PANTOPRAZOLE
     Dosage: UNK
  20. SOD [Concomitant]
     Dosage: 40 MG, 1X/DAY (IN THE MORNING)
  21. DIGOXIN [Concomitant]
     Active Substance: DIGOXIN
     Dosage: 0.125 MG, 1X/DAY (EVERY MORNING)
  22. METOPROLOL TARTRATE [Concomitant]
     Active Substance: METOPROLOL TARTRATE
     Dosage: 25 MG, 1X/DAY (ONE AND A HALF IN THE MORNING AND ONE AND A HALF IN THE NIGHT)
  23. FOLATE SODIUM [Concomitant]
     Active Substance: FOLATE SODIUM
     Dosage: 800 MG, 1X/DAY (ONCE A DAY AT NIGHT)

REACTIONS (1)
  - Atrioventricular block [Unknown]
